FAERS Safety Report 8400629-X (Version None)
Quarter: 2012Q2

REPORT INFORMATION
  Report Type: 
  Country: None (occurrence: None)
  Receive Date: 20120531
  Receipt Date: 20120524
  Transmission Date: 20120825
  Serious: No
  Sender: FDA-Public Use
  Company Number: US-B.I. PHARMACEUTICALS,INC./RIDGEFIELD-2012-BP-10033BP

PATIENT
  Sex: Male

DRUGS (7)
  1. SPIRIVA [Suspect]
     Indication: EMPHYSEMA
     Dosage: 18 MCG
     Route: 055
     Dates: start: 20100101
  2. CARVEDILOL [Concomitant]
  3. CRESTOR [Concomitant]
  4. LYRICA [Concomitant]
     Indication: BACK DISORDER
  5. BACLOFEN [Concomitant]
     Indication: BACK DISORDER
  6. LISINOPRIL [Concomitant]
     Indication: HYPERTENSION
  7. MORPHINE SULFATE [Concomitant]
     Indication: BACK PAIN

REACTIONS (3)
  - SPUTUM DISCOLOURED [None]
  - PULMONARY CONGESTION [None]
  - PAINFUL RESPIRATION [None]
